FAERS Safety Report 15264693 (Version 1)
Quarter: 2018Q3

REPORT INFORMATION
  Report Type: Spontaneous
  Country: US (occurrence: US)
  Receive Date: 20180723
  Receipt Date: 20180723
  Transmission Date: 20181010
  Serious: Yes (Life-Threatening, Hospitalization)
  Sender: FDA-Public Use
  Company Number: None

PATIENT
  Age: 74 Year
  Sex: Female

DRUGS (1)
  1. LOSARTAN 50MG [Suspect]
     Active Substance: LOSARTAN
     Indication: HYPERTENSION
     Dosage: ?          OTHER FREQUENCY:2QAM AND 1QPM;?
     Route: 048
     Dates: start: 20180715

REACTIONS (4)
  - Throat tightness [None]
  - Dyspnoea [None]
  - Product substitution issue [None]
  - Drug hypersensitivity [None]

NARRATIVE: CASE EVENT DATE: 20180717
